FAERS Safety Report 5755992-5 (Version None)
Quarter: 2008Q2

REPORT INFORMATION
  Report Type: 
  Country: None (occurrence: None)
  Receive Date: 20080602
  Receipt Date: 20080313
  Transmission Date: 20081010
  Serious: No
  Sender: FDA-Public Use
  Company Number: US-ABBOTT-08P-163-0442598-00

PATIENT
  Sex: Female

DRUGS (2)
  1. ZEMPLAR [Suspect]
     Indication: BLOOD PARATHYROID HORMONE INCREASED
  2. ZEMPLAR [Suspect]
     Indication: HYPERPARATHYROIDISM SECONDARY

REACTIONS (2)
  - LABORATORY TEST ABNORMAL [None]
  - WRONG TECHNIQUE IN DRUG USAGE PROCESS [None]
